FAERS Safety Report 5186941-9 (Version None)
Quarter: 2006Q4

REPORT INFORMATION
  Report Type: 
  Country: None (occurrence: None)
  Receive Date: 20061213
  Receipt Date: 20061130
  Transmission Date: 20070319
  Serious: Yes (Hospitalization, Disabling)
  Sender: FDA-Public Use
  Company Number: 2006-151281-NL

PATIENT
  Sex: Female

DRUGS (1)
  1. GANIRELIX ACETATE INJECTION [Suspect]
     Indication: INFERTILITY
     Dates: start: 20060201

REACTIONS (6)
  - AMNESIA [None]
  - ENCEPHALITIS HAEMORRHAGIC [None]
  - LOSS OF CONSCIOUSNESS [None]
  - MOBILITY DECREASED [None]
  - SPEECH DISORDER [None]
  - URINARY INCONTINENCE [None]
